FAERS Safety Report 5703374-4 (Version None)
Quarter: 2008Q2

REPORT INFORMATION
  Report Type: 
  Country: None (occurrence: None)
  Receive Date: 20080411
  Receipt Date: 20080404
  Transmission Date: 20081010
  Serious: Yes (Other)
  Sender: FDA-Public Use
  Company Number: US-BOEHRINGER INGELHEIM GMBH, GERMANY-2008-BP-05328BP

PATIENT
  Sex: Female

DRUGS (19)
  1. ATROVENT HFA [Suspect]
     Dates: start: 20071001
  2. SOLU-MEDROL [Suspect]
     Dates: start: 20071001
  3. SOLU-CORTEF [Suspect]
     Dates: start: 20071001
  4. DIPRIVAN [Suspect]
     Dates: start: 20071001
  5. ROCURONIUM BROMIDE [Suspect]
     Dates: start: 20071001
  6. SUCCINYL CHLORIDE [Suspect]
     Dates: start: 20071001
  7. XYLOCAINE [Suspect]
     Dates: start: 20071001
  8. VANCOMYCIN [Concomitant]
     Dates: start: 20071001
  9. GENTAMICIN [Concomitant]
     Dates: start: 20071001
  10. DECADRON [Concomitant]
     Dates: start: 20071001
  11. BENADRYL [Concomitant]
     Route: 042
     Dates: start: 20071001
  12. BENADRYL [Concomitant]
     Route: 048
     Dates: start: 20071001
  13. ALBUTEROL [Concomitant]
     Dates: start: 20071001
  14. ZANTAC [Concomitant]
     Dates: start: 20071001
  15. EPINEPHRINE [Concomitant]
     Dates: start: 20071001
  16. XOPENEX [Concomitant]
     Route: 055
     Dates: start: 20071001
  17. PLAVIX [Concomitant]
     Dates: start: 20071001
  18. LOVENOX [Concomitant]
     Dates: start: 20071001
  19. ALL OTHER THERAPEUTIC PRODUCTS [Concomitant]
     Dates: start: 20071001

REACTIONS (2)
  - ANAPHYLACTIC SHOCK [None]
  - PAIN [None]
